FAERS Safety Report 9178867 (Version 1)
Quarter: 2013Q1

REPORT INFORMATION
  Report Type: Spontaneous
  Country: FI (occurrence: FI)
  Receive Date: 20130321
  Receipt Date: 20130321
  Transmission Date: 20140127
  Serious: Yes (Hospitalization)
  Sender: FDA-Public Use
  Company Number: FI-ROCHE-1203777

PATIENT
  Age: 69 Year
  Sex: Male

DRUGS (10)
  1. CEFTRIAXONE [Suspect]
     Indication: PROPHYLAXIS
     Dosage: FOR FIVE DAYS
     Route: 065
  2. PANTOPRAZOLE [Concomitant]
     Indication: PROPHYLAXIS
  3. TRAMADOL [Concomitant]
     Indication: PROPHYLAXIS
     Route: 065
  4. DALTEPARIN [Concomitant]
     Indication: PROPHYLAXIS
     Route: 065
  5. OXYCODONE [Concomitant]
     Indication: PROPHYLAXIS
     Route: 065
  6. ONDANSETRON [Concomitant]
     Indication: PROPHYLAXIS
     Route: 065
  7. OXAZEPAM [Concomitant]
     Indication: PROPHYLAXIS
     Route: 065
  8. CARVEDILOL [Concomitant]
     Indication: BLOOD PRESSURE INCREASED
     Route: 065
  9. LERCANIDIPINE [Concomitant]
     Route: 065
  10. TAMSULOSINE [Concomitant]
     Route: 065

REACTIONS (1)
  - Leukocytoclastic vasculitis [Recovered/Resolved]
